FAERS Safety Report 15147395 (Version 1)
Quarter: 2018Q3

REPORT INFORMATION
  Report Type: Spontaneous
  Country: GB (occurrence: GB)
  Receive Date: 20180716
  Receipt Date: 20180716
  Transmission Date: 20181010
  Serious: Yes (Hospitalization, Other)
  Sender: FDA-Public Use
  Company Number: GB-INDICUS PHARMA-000543

PATIENT
  Age: 93 Year
  Sex: Female

DRUGS (2)
  1. DONEPEZIL/DONEPEZIL HYDROCHLORIDE [Suspect]
     Active Substance: DONEPEZIL HYDROCHLORIDE
     Indication: DEMENTIA ALZHEIMER^S TYPE
  2. DOCUSATE [Concomitant]
     Active Substance: DOCUSATE

REACTIONS (1)
  - Myoclonus [Recovered/Resolved]
